FAERS Safety Report 13365153 (Version 1)
Quarter: 2017Q1

REPORT INFORMATION
  Report Type: Spontaneous
  Country: US (occurrence: US)
  Receive Date: 20170323
  Receipt Date: 20170323
  Transmission Date: 20170429
  Serious: No
  Sender: FDA-Public Use
  Company Number: US-ROCHE-1478885

PATIENT
  Age: 70 Year
  Sex: Female

DRUGS (2)
  1. ADVAIR HFA [Concomitant]
     Active Substance: FLUTICASONE PROPIONATE\SALMETEROL XINAFOATE
     Indication: ASTHMA
     Dosage: 500 ONE PUFF A DAY
     Route: 065
  2. XOLAIR [Suspect]
     Active Substance: OMALIZUMAB
     Indication: BLOOD IMMUNOGLOBULIN E INCREASED
     Dosage: MOST RECENT DOSE OF OMALIZUMAB RECEIVED ON 20/OCT/2014
     Route: 065

REACTIONS (4)
  - Pruritus [Unknown]
  - Oedema [Not Recovered/Not Resolved]
  - Oedema peripheral [Unknown]
  - Insomnia [Unknown]

NARRATIVE: CASE EVENT DATE: 20141021
